FAERS Safety Report 17224840 (Version 1)
Quarter: 2019Q4

REPORT INFORMATION
  Report Type: Spontaneous
  Country: US (occurrence: US)
  Receive Date: 20191209
  Receipt Date: 20191209
  Transmission Date: 20200122
  Serious: Yes (Other)
  Sender: FDA-Public Use
  Company Number: None

PATIENT
  Age: 58 Year
  Sex: Female
  Weight: 48.99 kg

DRUGS (2)
  1. PREGABALIN 50MG [Suspect]
     Active Substance: PREGABALIN
     Indication: SPINAL OSTEOARTHRITIS
  2. PREGABALIN 50MG [Suspect]
     Active Substance: PREGABALIN
     Indication: POST LAMINECTOMY SYNDROME
     Dates: start: 201911

REACTIONS (5)
  - Rash [None]
  - Therapy non-responder [None]
  - Nausea [None]
  - Diarrhoea [None]
  - Headache [None]
